FAERS Safety Report 10505599 (Version 1)
Quarter: 2014Q4

REPORT INFORMATION
  Report Type: Spontaneous
  Country: US (occurrence: US)
  Receive Date: 20141008
  Receipt Date: 20141008
  Transmission Date: 20150528
  Serious: Yes (Hospitalization, Other)
  Sender: FDA-Public Use
  Company Number: US-TEVA-513935USA

PATIENT
  Age: 46 Year
  Sex: Female

DRUGS (2)
  1. PROVIGIL [Suspect]
     Active Substance: MODAFINIL
     Dates: start: 20140729, end: 20140731
  2. EFFEXOR [Concomitant]
     Active Substance: VENLAFAXINE HYDROCHLORIDE

REACTIONS (4)
  - Fall [Unknown]
  - Syncope [Recovered/Resolved]
  - Ankle fracture [Unknown]
  - Pain [Unknown]

NARRATIVE: CASE EVENT DATE: 20140730
